FAERS Safety Report 5503502-X (Version None)
Quarter: 2007Q4

REPORT INFORMATION
  Report Type: 
  Country: None (occurrence: None)
  Receive Date: 20071031
  Receipt Date: 20071025
  Transmission Date: 20080405
  Serious: Yes (Other)
  Sender: FDA-Public Use
  Company Number: JP-MERCK-0710USA03173

PATIENT
  Age: 68 Year
  Sex: Female

DRUGS (5)
  1. PEPCID [Suspect]
     Indication: GASTRITIS
     Route: 048
     Dates: start: 20050909, end: 20051103
  2. SELBEX [Concomitant]
     Indication: GASTRITIS
     Route: 048
     Dates: start: 20050909, end: 20050913
  3. NAUZELIN [Concomitant]
     Indication: GASTRITIS
     Route: 048
     Dates: start: 20050909, end: 20050913
  4. MEILAX [Concomitant]
     Indication: NEUROSIS
     Route: 048
     Dates: start: 20050916, end: 20050927
  5. DILTIAZEM HCL [Concomitant]
     Indication: HYPERTENSION
     Route: 065
     Dates: start: 20050916, end: 20050927

REACTIONS (1)
  - APLASTIC ANAEMIA [None]
